FAERS Safety Report 13840265 (Version 1)
Quarter: 2017Q3

REPORT INFORMATION
  Report Type: Spontaneous
  Country: US (occurrence: US)
  Receive Date: 20170807
  Receipt Date: 20170807
  Transmission Date: 20171127
  Serious: Yes (Life-Threatening, Hospitalization)
  Sender: FDA-Public Use
  Company Number: US-AVADEL LEGACY PHARMACEUTICALS, LLC-2017AVA00067

PATIENT
  Age: 29 Year
  Sex: Male

DRUGS (3)
  1. PHENYLEPHRINE [Suspect]
     Active Substance: PHENYLEPHRINE\PHENYLEPHRINE HYDROCHLORIDE
     Dosage: 400 ?G, ONCE
     Route: 017
  2. SUDAFED [Suspect]
     Active Substance: PSEUDOEPHEDRINE HYDROCHLORIDE
     Indication: PRIAPISM
     Dosage: ^MORE THAN PRESCRIBED DOSING OF SUDAFED^
     Route: 048
  3. PHENYLEPHRINE [Suspect]
     Active Substance: PHENYLEPHRINE\PHENYLEPHRINE HYDROCHLORIDE
     Indication: PRIAPISM
     Dosage: UNK UNK, ONCE
     Route: 017

REACTIONS (7)
  - Prescribed overdose [None]
  - Cardiogenic shock [Recovered/Resolved]
  - Respiratory failure [Recovered/Resolved]
  - Stress cardiomyopathy [Recovered/Resolved]
  - Arteriospasm coronary [Recovered/Resolved]
  - Acute myocardial infarction [Recovered/Resolved]
  - Hypertensive emergency [Recovered/Resolved]
